FAERS Safety Report 10170084 (Version 4)
Quarter: 2014Q2

REPORT INFORMATION
  Report Type: Report from Study
  Country: UA (occurrence: UA)
  Receive Date: 20140513
  Receipt Date: 20140616
  Transmission Date: 20141212
  Serious: Yes (Life-Threatening, Hospitalization, Other)
  Sender: FDA-Public Use
  Company Number: UA-ONYX-2014-1024

PATIENT
  Age: 73 Year
  Sex: Female
  Weight: 60 kg

DRUGS (17)
  1. CARFILZOMIB [Suspect]
     Indication: PLASMA CELL MYELOMA
     Route: 042
     Dates: start: 20131209, end: 20131210
  2. CARFILZOMIB [Suspect]
     Route: 042
     Dates: start: 20131216, end: 20140109
  3. CARFILZOMIB [Suspect]
     Route: 042
     Dates: start: 20140121, end: 20140416
  4. MELPHALAN [Suspect]
     Indication: PLASMA CELL MYELOMA
     Route: 048
     Dates: start: 20131209
  5. PREDNISONE [Suspect]
     Indication: PLASMA CELL MYELOMA
     Route: 048
     Dates: start: 20131209
  6. FERRI SULFAS [Concomitant]
     Indication: ANAEMIA
     Route: 048
     Dates: start: 20131220, end: 20140508
  7. VALACICLOVIRUM [Concomitant]
     Indication: ANTIVIRAL PROPHYLAXIS
     Route: 048
     Dates: start: 20131209, end: 20140508
  8. LIZINOPRILUM [Concomitant]
     Indication: BLOOD PRESSURE ABNORMAL
     Route: 048
     Dates: start: 20131225
  9. CARDIOMAGNYL [Concomitant]
     Indication: ANTIPLATELET THERAPY
     Route: 048
     Dates: start: 20131125
  10. SYDNOPHARM [Concomitant]
     Indication: HYPERTENSION
     Route: 048
     Dates: start: 20140217
  11. PREDUCTAL MR [Concomitant]
     Indication: ANGINA PECTORIS
     Route: 048
     Dates: start: 20140217
  12. HEPTRAL [Concomitant]
     Indication: PROPHYLAXIS
     Route: 048
     Dates: start: 20140418
  13. URSOFALK [Concomitant]
     Indication: PROPHYLAXIS
     Route: 048
     Dates: start: 20140418
  14. DUPHALAC [Concomitant]
     Indication: LIVER DISORDER
     Route: 048
     Dates: start: 20140428
  15. MEZYM FORTE [Concomitant]
     Indication: HEPATITIS
     Route: 048
     Dates: start: 20140428
  16. HEPA MERZ [Concomitant]
     Indication: HEPATITIS
     Route: 048
     Dates: start: 20140506
  17. L-CARNITINE [Concomitant]
     Indication: HEPATITIS
     Route: 048
     Dates: start: 20140506, end: 20140512

REACTIONS (1)
  - Hepatitis toxic [Recovered/Resolved]
